FAERS Safety Report 8188227-7 (Version None)
Quarter: 2012Q1

REPORT INFORMATION
  Report Type: 
  Country: None (occurrence: None)
  Receive Date: 20120306
  Receipt Date: 20120102
  Transmission Date: 20120608
  Serious: Yes (Other)
  Sender: FDA-Public Use
  Company Number: US-BAYER-2012-011167

PATIENT
  Age: 84 Year
  Sex: Female
  Weight: 73 kg

DRUGS (4)
  1. TOPROL-XL [Suspect]
  2. ALEVE (CAPLET) [Suspect]
     Dosage: 1 DF, QD
     Route: 048
     Dates: start: 20120131, end: 20120201
  3. LEVOXYL [Concomitant]
  4. VITAMIN TAB [Concomitant]

REACTIONS (1)
  - AGE-RELATED MACULAR DEGENERATION [None]
